FAERS Safety Report 8546979-8 (Version None)
Quarter: 2012Q3

REPORT INFORMATION
  Report Type: 
  Country: None (occurrence: None)
  Receive Date: 20120727
  Receipt Date: 20120404
  Transmission Date: 20120928
  Serious: No
  Sender: FDA-Public Use
  Company Number: US-ASTRAZENECA-2012SE15367

PATIENT
  Age: 41 Year
  Sex: Female
  Weight: 66.7 kg

DRUGS (22)
  1. SEROQUEL [Suspect]
     Indication: POST-TRAUMATIC STRESS DISORDER
     Route: 048
     Dates: start: 20040101
  2. SEROQUEL [Suspect]
     Route: 048
  3. SEROQUEL [Suspect]
     Dosage: 200 MG ONCE IN THE MORNING AND ONCE AT NIGHT
     Route: 048
     Dates: start: 20120101
  4. SEROQUEL [Suspect]
     Dosage: 100 MG IN THE MORNING AND 200 MG IN THE NIGHT
     Route: 048
  5. LAMICTAL [Concomitant]
     Indication: BIPOLAR DISORDER
  6. SEROQUEL [Suspect]
     Route: 048
  7. SEROQUEL [Suspect]
     Dosage: 200 MG ONCE IN THE MORNING AND ONCE AT NIGHT
     Route: 048
     Dates: start: 20120101
  8. SEROQUEL [Suspect]
     Dosage: 100 MG IN THE MORNING AND 200 MG IN THE NIGHT
     Route: 048
  9. LAMICTAL [Concomitant]
     Indication: SCHIZOPHRENIA
  10. SEROQUEL [Suspect]
     Indication: BORDERLINE PERSONALITY DISORDER
     Route: 048
     Dates: start: 20040101
  11. SEROQUEL [Suspect]
     Route: 048
  12. SEROQUEL [Suspect]
     Indication: BIPOLAR I DISORDER
     Route: 048
     Dates: start: 20040101
  13. SEROQUEL [Suspect]
     Dosage: 200 MG ONCE IN THE MORNING AND ONCE AT NIGHT
     Route: 048
     Dates: start: 20120101
  14. SEROQUEL [Suspect]
     Dosage: 100 MG IN THE MORNING AND 200 MG IN THE NIGHT
     Route: 048
  15. SEROQUEL [Suspect]
     Dosage: 100 MG IN THE MORNING AND 200 MG IN THE NIGHT
     Route: 048
  16. SEROQUEL [Suspect]
     Route: 048
  17. SEROQUEL [Suspect]
     Dosage: 200 MG ONCE IN THE MORNING AND ONCE AT NIGHT
     Route: 048
     Dates: start: 20120101
  18. SEROQUEL [Suspect]
     Dosage: 100 MG IN THE MORNING AND 200 MG IN THE NIGHT
     Route: 048
  19. SEROQUEL [Suspect]
     Indication: SCHIZOAFFECTIVE DISORDER
     Route: 048
     Dates: start: 20040101
  20. SEROQUEL [Suspect]
     Route: 048
  21. SEROQUEL [Suspect]
     Dosage: 200 MG ONCE IN THE MORNING AND ONCE AT NIGHT
     Route: 048
     Dates: start: 20120101
  22. SEROQUEL [Suspect]
     Route: 048
     Dates: start: 20040101

REACTIONS (2)
  - MOOD SWINGS [None]
  - INSOMNIA [None]
